FAERS Safety Report 8697576 (Version 3)
Quarter: 2012Q4

REPORT INFORMATION
  Report Type: 
  Country: SE (occurrence: SE)
  Receive Date: 20120801
  Receipt Date: 20121001
  Transmission Date: 20130627
  Serious: Yes (Other)
  Sender: FDA-Public Use
  Company Number: SE-JNJFOC-20120712661

PATIENT
  Age: 36 Year
  Sex: Male

DRUGS (3)
  1. INVEGA [Suspect]
     Indication: HALLUCINATION, AUDITORY
     Route: 065
     Dates: start: 2011
  2. ATARAX [Concomitant]
     Indication: PRODUCT USED FOR UNKNOWN INDICATION
     Dosage: when needed
     Route: 065
  3. IMOVANE [Concomitant]
     Indication: PRODUCT USED FOR UNKNOWN INDICATION
     Dosage: as needed at night
     Route: 065

REACTIONS (2)
  - Intraocular pressure increased [Unknown]
  - Gaze palsy [Unknown]
